FAERS Safety Report 12597142 (Version 1)
Quarter: 2016Q3

REPORT INFORMATION
  Report Type: Spontaneous
  Country: US (occurrence: US)
  Receive Date: 20160727
  Receipt Date: 20160727
  Transmission Date: 20161109
  Serious: No
  Sender: FDA-Public Use
  Company Number: US-BAYER-2016-138831

PATIENT
  Age: 77 Year
  Sex: Female

DRUGS (7)
  1. VITAMIN D [Concomitant]
     Active Substance: CHOLECALCIFEROL
  2. CHLORINE [Concomitant]
     Active Substance: CHLORINE
  3. INOSITOL [Concomitant]
     Active Substance: INOSITOL
  4. MIRALAX [Suspect]
     Active Substance: POLYETHYLENE GLYCOL 3350
     Indication: CONSTIPATION
     Dosage: 1 DF, QD
     Route: 048
  5. SERPENTIL [Concomitant]
     Active Substance: ESCITALOPRAM OXALATE
  6. VITAMIN C [Concomitant]
     Active Substance: ASCORBIC ACID
  7. BENEFIBER [Concomitant]
     Active Substance: STARCH, WHEAT

REACTIONS (2)
  - Product use issue [None]
  - Protein urine present [Not Recovered/Not Resolved]

NARRATIVE: CASE EVENT DATE: 2016
